FAERS Safety Report 26015655 (Version 2)
Quarter: 2025Q4

REPORT INFORMATION
  Report Type: Report from Study
  Country: US (occurrence: US)
  Receive Date: 20251109
  Receipt Date: 20251114
  Transmission Date: 20260117
  Serious: Yes (Other)
  Sender: ABBVIE
  Company Number: US-ABBVIE-6532661

PATIENT
  Age: 65 Year
  Sex: Male
  Weight: 86.636 kg

DRUGS (20)
  1. CREON [Suspect]
     Active Substance: PANCRELIPASE AMYLASE\PANCRELIPASE LIPASE\PANCRELIPASE PROTEASE
     Indication: Pancreatic failure
     Route: 048
     Dates: start: 20160329
  2. CREON [Suspect]
     Active Substance: PANCRELIPASE AMYLASE\PANCRELIPASE LIPASE\PANCRELIPASE PROTEASE
     Indication: Pancreatic failure
     Route: 050
     Dates: start: 20250115
  3. ELIQUIS [Concomitant]
     Active Substance: APIXABAN
     Indication: Deep vein thrombosis
  4. AMITRIPTYLINE [Concomitant]
     Active Substance: AMITRIPTYLINE
     Indication: Anxiety
  5. CYMBALTA [Concomitant]
     Active Substance: DULOXETINE HYDROCHLORIDE
     Indication: Pain
  6. TRAMADOL [Concomitant]
     Active Substance: TRAMADOL
     Indication: Pain
  7. FOLIC ACID [Concomitant]
     Active Substance: FOLIC ACID
     Indication: Anaemia vitamin B12 deficiency
  8. LOPERAMIDE [Concomitant]
     Active Substance: LOPERAMIDE
     Indication: Diarrhoea
  9. DICYCLOMINE [Concomitant]
     Active Substance: DICYCLOMINE HYDROCHLORIDE
     Indication: Abdominal pain
  10. MELOXICAM [Concomitant]
     Active Substance: MELOXICAM
     Indication: Pain
  11. FLOMAX [Concomitant]
     Active Substance: TAMSULOSIN HYDROCHLORIDE
     Indication: Benign prostatic hyperplasia
  12. TORSEMIDE [Concomitant]
     Active Substance: TORSEMIDE
     Indication: Oedema
  13. TOPAMAX [Concomitant]
     Active Substance: TOPIRAMATE
     Indication: Headache
  14. VITAMIN D3 [Concomitant]
     Active Substance: CHOLECALCIFEROL
     Indication: Vitamin D decreased
  15. METOPROLOL [Concomitant]
     Active Substance: METOPROLOL
     Indication: Blood pressure measurement
  16. SPIRONOLACTONE [Concomitant]
     Active Substance: SPIRONOLACTONE
     Indication: Oedema
  17. THIAMINE [Concomitant]
     Active Substance: THIAMINE
     Indication: Vitamin supplementation
  18. ATORVASTATIN [Concomitant]
     Active Substance: ATORVASTATIN
     Indication: Blood cholesterol abnormal
  19. Paradex [Concomitant]
     Indication: Cellulitis
  20. LEVOTHYROXINE [Concomitant]
     Active Substance: LEVOTHYROXINE
     Indication: Thyroid hormones increased

REACTIONS (2)
  - Hepatic cirrhosis [Unknown]
  - Nausea [Recovered/Resolved]

NARRATIVE: CASE EVENT DATE: 20160101
